FAERS Safety Report 5545500-6 (Version None)
Quarter: 2007Q4

REPORT INFORMATION
  Report Type: 
  Country: None (occurrence: None)
  Receive Date: 20071211
  Receipt Date: 20070125
  Transmission Date: 20080405
  Serious: No
  Sender: FDA-Public Use
  Company Number: US-AMGEN-KDL208636

PATIENT
  Sex: Female

DRUGS (2)
  1. ENBREL [Suspect]
     Indication: RHEUMATOID ARTHRITIS
     Route: 058
     Dates: start: 20070110
  2. ARAVA [Concomitant]
     Route: 048
     Dates: start: 20060501

REACTIONS (6)
  - ARTHRALGIA [None]
  - HEADACHE [None]
  - INJECTION SITE REACTION [None]
  - JOINT STIFFNESS [None]
  - PAIN IN EXTREMITY [None]
  - SINUSITIS [None]
